FAERS Safety Report 15764059 (Version 1)
Quarter: 2018Q4

REPORT INFORMATION
  Report Type: Report from Study
  Country: None (occurrence: US)
  Receive Date: 20181227
  Receipt Date: 20181227
  Transmission Date: 20190205
  Serious: Yes (Other)
  Sender: FDA-Public Use
  Company Number: US-ABBVIE-18K-163-2592330-00

PATIENT
  Age: 73 Year
  Sex: Female
  Weight: 56.3 kg

DRUGS (8)
  1. HUMIRA [Suspect]
     Active Substance: ADALIMUMAB
     Route: 058
     Dates: start: 201809, end: 201811
  2. TYLENOL [Concomitant]
     Active Substance: ACETAMINOPHEN
     Indication: HIP SURGERY
  3. HUMIRA [Suspect]
     Active Substance: ADALIMUMAB
     Route: 058
     Dates: start: 2011, end: 201809
  4. CLOPIDOGREL [Concomitant]
     Active Substance: CLOPIDOGREL BISULFATE
     Indication: THROMBOSIS PROPHYLAXIS
  5. LISINOPRIL. [Concomitant]
     Active Substance: LISINOPRIL
     Indication: HYPERTENSION
  6. HUMIRA [Suspect]
     Active Substance: ADALIMUMAB
     Indication: RHEUMATOID ARTHRITIS
     Route: 058
     Dates: start: 201101, end: 2011
  7. ATORVASTATIN [Concomitant]
     Active Substance: ATORVASTATIN
     Indication: BLOOD CHOLESTEROL
  8. METHOTREXATE. [Concomitant]
     Active Substance: METHOTREXATE
     Indication: RHEUMATOID ARTHRITIS

REACTIONS (10)
  - Limb discomfort [Recovered/Resolved]
  - Gait disturbance [Recovering/Resolving]
  - Joint swelling [Recovered/Resolved]
  - Arthralgia [Recovered/Resolved]
  - Arthritis [Recovered/Resolved]
  - Mobility decreased [Not Recovered/Not Resolved]
  - Drug ineffective [Unknown]
  - Osteoarthritis [Recovered/Resolved]
  - Arthralgia [Recovered/Resolved]
  - Limb mass [Recovered/Resolved]

NARRATIVE: CASE EVENT DATE: 2011
